FAERS Safety Report 9698244 (Version 1)
Quarter: 2013Q4

REPORT INFORMATION
  Report Type: Spontaneous
  Country: US (occurrence: US)
  Receive Date: 20131120
  Receipt Date: 20131120
  Transmission Date: 20140711
  Serious: No
  Sender: FDA-Public Use
  Company Number: US-ENDO PHARMACEUTICALS INC.-SOTA20120003

PATIENT
  Sex: Female

DRUGS (3)
  1. SOTALOL HYDROCHLORIDE TABLETS 80MG [Suspect]
     Indication: CARDIAC DISORDER
     Dosage: 1/2 TABLET
     Route: 048
  2. LOTREL [Suspect]
     Indication: HYPERTENSION
     Dosage: UNKNOWN
     Route: 065
  3. CLONIDINE [Suspect]
     Indication: HYPERTENSION
     Route: 065

REACTIONS (3)
  - Sleep apnoea syndrome [Unknown]
  - Insomnia [Unknown]
  - Blood pressure increased [Unknown]
